FAERS Safety Report 20954167 (Version 2)
Quarter: 2022Q3

REPORT INFORMATION
  Report Type: Spontaneous
  Country: US (occurrence: US)
  Receive Date: 20220614
  Receipt Date: 20220729
  Transmission Date: 20221026
  Serious: Yes (Other)
  Sender: FDA-Public Use
  Company Number: US-UCBSA-2022016135

PATIENT
  Age: 60 Year
  Sex: Male

DRUGS (1)
  1. CIMZIA [Suspect]
     Active Substance: CERTOLIZUMAB PEGOL
     Indication: Crohn^s disease
     Dosage: 400 MILLIGRAM, EV 2 WEEKS(QOW)
     Route: 058
     Dates: start: 202012

REACTIONS (2)
  - Crohn^s disease [Unknown]
  - Liver disorder [Unknown]

NARRATIVE: CASE EVENT DATE: 20220201
